FAERS Safety Report 6423115-5 (Version None)
Quarter: 2009Q4

REPORT INFORMATION
  Report Type: 
  Country: None (occurrence: None)
  Receive Date: 20091102
  Receipt Date: 20091027
  Transmission Date: 20100525
  Serious: Yes (Death, Hospitalization)
  Sender: FDA-Public Use
  Company Number: BR-ASTRAZENECA-2009SE23046

PATIENT
  Age: 64 Year
  Sex: Female
  Weight: 78 kg

DRUGS (6)
  1. ARIMIDEX [Suspect]
     Indication: BREAST CANCER
     Route: 048
     Dates: start: 20070101
  2. VASTAREL [Concomitant]
     Indication: ANGINA PECTORIS
     Route: 048
     Dates: start: 20050101
  3. DIAMICRON [Concomitant]
     Indication: DIABETES MELLITUS
     Dosage: OD
     Route: 048
     Dates: start: 20030101
  4. LOSARTAN POTASSIUM [Concomitant]
     Indication: HYPERTENSION
     Dosage: BID
     Route: 048
     Dates: start: 20030101
  5. CALTRATE [Concomitant]
     Dosage: OD
     Route: 048
     Dates: start: 20050101
  6. PURAN T4 [Concomitant]
     Indication: THYROIDECTOMY
     Dosage: OD
     Route: 048
     Dates: start: 19790101

REACTIONS (5)
  - INFLUENZA [None]
  - OEDEMA PERIPHERAL [None]
  - PNEUMONIA [None]
  - RENAL FAILURE [None]
  - SEPTIC SHOCK [None]
